FAERS Safety Report 4374141-1 (Version None)
Quarter: 2004Q2

REPORT INFORMATION
  Report Type: 
  Country: None (occurrence: None)
  Receive Date: 20040609
  Receipt Date: 20040426
  Transmission Date: 20050107
  Serious: Yes (Hospitalization)
  Sender: FDA-Public Use
  Company Number: 200411518JP

PATIENT
  Age: 50 Year
  Sex: Female
  Weight: 65 kg

DRUGS (3)
  1. KETEK [Suspect]
     Indication: PHARYNGOLARYNGEAL PAIN
     Route: 048
     Dates: start: 20040402
  2. TRANSAMIN [Concomitant]
     Indication: PHARYNGOLARYNGEAL PAIN
     Dosage: DOSE: 1 TABLET
     Route: 048
     Dates: start: 20040402
  3. LOXONIN [Concomitant]
     Indication: PHARYNGOLARYNGEAL PAIN
     Dosage: DOSE: 1 TABLET
     Route: 048
     Dates: start: 20040402

REACTIONS (7)
  - DYSPNOEA [None]
  - GASTROENTERITIS [None]
  - HYPERVENTILATION [None]
  - HYPOAESTHESIA [None]
  - MUSCLE CRAMP [None]
  - NASOPHARYNGITIS [None]
  - TREMOR [None]
